FAERS Safety Report 17751883 (Version 1)
Quarter: 2020Q2

REPORT INFORMATION
  Report Type: Spontaneous
  Country: CH (occurrence: CH)
  Receive Date: 20200506
  Receipt Date: 20200506
  Transmission Date: 20200714
  Serious: Yes (Death, Life-Threatening, Hospitalization, Other)
  Sender: FDA-Public Use
  Company Number: CH-PFIZER INC-2020178661

PATIENT
  Age: 58 Year

DRUGS (4)
  1. TEMESTA (LORAZEPAM) [Suspect]
     Active Substance: LORAZEPAM
     Dosage: 2 MG IN TOTAL
     Route: 048
     Dates: start: 20180429, end: 20180429
  2. PARACETAMOL [Suspect]
     Active Substance: ACETAMINOPHEN
     Indication: SUICIDE ATTEMPT
     Dosage: 35 G IN TOTAL
     Route: 048
     Dates: start: 20180429, end: 20180429
  3. TARGIN [Suspect]
     Active Substance: NALOXONE HYDROCHLORIDE\OXYCODONE HYDROCHLORIDE
     Indication: SUICIDE ATTEMPT
     Dosage: 125 MG IN TOTAL
     Route: 048
     Dates: start: 20180429, end: 20180429
  4. TRITTICO [Suspect]
     Active Substance: TRAZODONE HYDROCHLORIDE
     Indication: SUICIDE ATTEMPT
     Dosage: 2.2 G IN TOTAL
     Route: 048
     Dates: start: 20180429, end: 20180429

REACTIONS (9)
  - Vomiting [Recovered/Resolved]
  - Suicide attempt [Recovered/Resolved]
  - Death [Fatal]
  - Poisoning [Recovered/Resolved]
  - Fatigue [Recovered/Resolved]
  - Drug abuse [Recovered/Resolved]
  - Nausea [Recovered/Resolved]
  - Aspartate aminotransferase increased [Unknown]
  - Alanine aminotransferase increased [Unknown]

NARRATIVE: CASE EVENT DATE: 20180429
